FAERS Safety Report 14596232 (Version 1)
Quarter: 2018Q1

REPORT INFORMATION
  Report Type: Spontaneous
  Country: FR (occurrence: FR)
  Receive Date: 20180303
  Receipt Date: 20180303
  Transmission Date: 20180509
  Serious: Yes (Other)
  Sender: FDA-Public Use
  Company Number: FR-AUROBINDO-AUR-APL-2018-010667

PATIENT
  Age: 83 Year
  Sex: Male

DRUGS (4)
  1. PROCARBAZINE [Suspect]
     Active Substance: PROCARBAZINE
     Indication: HODGKIN^S DISEASE MIXED CELLULARITY STAGE IV
     Dosage: ()
     Route: 065
  2. PREDNISONE. [Suspect]
     Active Substance: PREDNISONE
     Indication: HODGKIN^S DISEASE MIXED CELLULARITY STAGE IV
     Dosage: ()
     Route: 065
  3. MUSTARGEN                          /00091501/ [Suspect]
     Active Substance: MECHLORETHAMINE
     Indication: HODGKIN^S DISEASE MIXED CELLULARITY STAGE IV
     Dosage: ()
     Route: 065
  4. VINCRISTINE [Suspect]
     Active Substance: VINCRISTINE
     Indication: HODGKIN^S DISEASE MIXED CELLULARITY STAGE IV
     Dosage: ()
     Route: 065

REACTIONS (1)
  - Hodgkin^s disease recurrent [Unknown]
